FAERS Safety Report 4538582-1 (Version None)
Quarter: 2004Q4

REPORT INFORMATION
  Report Type: 
  Country: None (occurrence: None)
  Receive Date: 20041222
  Receipt Date: 20041210
  Transmission Date: 20050328
  Serious: Yes (Hospitalization)
  Sender: FDA-Public Use
  Company Number: 6010880

PATIENT
  Age: 79 Year
  Sex: Male

DRUGS (6)
  1. CARDENSIEL 2.5 MG(TABLETS) (BISOPROLOL) [Suspect]
     Indication: DRUG USE FOR UNKNOWN INDICATION
     Dosage: 2,500 MG (2,5 MG,1 IN 1 D) ORAL
     Route: 048
     Dates: start: 20030101
  2. GLICLAZIDE 80 MG TABLETS (GLICLAZIDE) [Suspect]
     Indication: DRUG USE FOR UNKNOWN INDICATION
     Dosage: 2,00 DOSAGE FORMS (1 DOSAGE FORMS,2 IN 1 D), ORAL
     Route: 048
     Dates: start: 19990101, end: 20040905
  3. RAMIPRIL [Suspect]
     Indication: DRUG USE FOR UNKNOWN INDICATION
     Dosage: 1 DOSAGE FORMS, 10 MG
     Dates: start: 19990101, end: 20040905
  4. RAMIPRIL [Suspect]
     Indication: DRUG USE FOR UNKNOWN INDICATION
     Dosage: 1 DOSAGE FORMS, 10 MG
     Dates: start: 20040927
  5. ZOCOR [Suspect]
     Indication: DRUG USE FOR UNKNOWN INDICATION
     Dosage: 1,00 DOSAGE FORMS (1 DOSAGE FORMS,1 IN 1 D), ORAL
     Route: 048
     Dates: start: 19990101, end: 20040905
  6. ASPEGIC (250 MG, POWDER) (ACETYLSALICYLATE LYSINE) [Suspect]
     Indication: DRUG USE FOR UNKNOWN INDICATION
     Dosage: 1,00 DOSAGE FORMS (1 DOSAGE FORMS,1 IN 1 D), ORAL
     Route: 048
     Dates: start: 19990101, end: 20040905

REACTIONS (8)
  - AGGRESSION [None]
  - AGITATION [None]
  - BLOOD BILIRUBIN INCREASED [None]
  - GASTROINTESTINAL MUCOSAL NECROSIS [None]
  - HELICOBACTER PYLORI IDENTIFICATION TEST POSITIVE [None]
  - PANCREATITIS ACUTE [None]
  - PEPTIC ULCER PERFORATION [None]
  - SEPTIC SHOCK [None]
